FAERS Safety Report 4533320-0 (Version None)
Quarter: 2004Q4

REPORT INFORMATION
  Report Type: 
  Country: None (occurrence: None)
  Receive Date: 20041210
  Receipt Date: 20041028
  Transmission Date: 20050328
  Serious: Yes (Hospitalization)
  Sender: FDA-Public Use
  Company Number: 2004-00727

PATIENT
  Sex: Male

DRUGS (1)
  1. VELCADE [Suspect]
     Dosage: 2.60 MG, IV BOLUS
     Route: 040

REACTIONS (1)
  - ABDOMINAL PAIN [None]
